FAERS Safety Report 8037723 (Version 6)
Quarter: 2013Q3

REPORT INFORMATION
  Report Type: Report from Study
  Country: DE (occurrence: DE)
  Receive Date: 20110715
  Receipt Date: 20130826
  Transmission Date: 20140515
  Serious: Yes (Hospitalization, Other)
  Sender: FDA-Public Use
  Company Number: DE-UCBSA-036650

PATIENT
  Age: 56 Year
  Sex: Male
  Weight: 78 kg

DRUGS (11)
  1. VITAMINE D [Concomitant]
     Indication: OSTEOPOROSIS PROPHYLAXIS
     Dosage: 1000 IE
     Dates: start: 2003
  2. CARVEDILOL [Concomitant]
     Dates: start: 2003
  3. CERTOLIZUMAB PEGOL [Suspect]
     Indication: RHEUMATOID ARTHRITIS
     Dosage: SINCE ??/MAR/2011 200 MG EVERY 2 WEEKS
     Route: 058
     Dates: start: 20100915
  4. LEFLUNOMIDE [Concomitant]
     Indication: RHEUMATOID ARTHRITIS
     Route: 048
     Dates: start: 20100419
  5. LEFLUNOMIDE [Concomitant]
     Indication: RHEUMATOID ARTHRITIS
     Route: 048
     Dates: start: 200405, end: 201004
  6. DECORTIN [Concomitant]
     Indication: RHEUMATOID ARTHRITIS
     Route: 048
  7. CARVEDIOL [Concomitant]
     Indication: HYPERTENSION
     Route: 048
  8. TOREM [Concomitant]
     Indication: HYPERTENSION
     Route: 048
     Dates: start: 200512
  9. EFEROX [Concomitant]
     Indication: HYPOTHYROIDISM
     Route: 048
     Dates: start: 200004
  10. IBUFLAM [Concomitant]
     Indication: OSTEOARTHRITIS
     Dosage: UP TO 3 X DAY
     Route: 048
     Dates: start: 201005, end: 20110414
  11. CALCIUM [Concomitant]
     Indication: OSTEOPOROSIS PROPHYLAXIS
     Dates: start: 2003

REACTIONS (1)
  - Lung infiltration [Recovered/Resolved]
